FAERS Safety Report 8284578-6 (Version None)
Quarter: 2012Q2

REPORT INFORMATION
  Report Type: 
  Country: None (occurrence: None)
  Receive Date: 20120413
  Receipt Date: 20111228
  Transmission Date: 20120825
  Serious: No
  Sender: FDA-Public Use
  Company Number: US-ASTRAZENECA-2011SE79038

PATIENT
  Sex: Male

DRUGS (4)
  1. NEXIUM [Suspect]
     Indication: GASTROOESOPHAGEAL REFLUX DISEASE
     Route: 048
  2. CLONAZEPAM [Concomitant]
  3. NEXIUM [Suspect]
     Indication: DYSPEPSIA
     Route: 048
  4. OMEPRAZOLE [Suspect]
     Route: 048

REACTIONS (2)
  - ADVERSE EVENT [None]
  - DRUG PRESCRIBING ERROR [None]
